FAERS Safety Report 7378206-1 (Version None)
Quarter: 2011Q1

REPORT INFORMATION
  Report Type: 
  Country: None (occurrence: None)
  Receive Date: 20110328
  Receipt Date: 20110321
  Transmission Date: 20110831
  Serious: Yes (Death, Hospitalization)
  Sender: FDA-Public Use
  Company Number: A0914665A

PATIENT
  Sex: Male

DRUGS (2)
  1. MORPHINE [Concomitant]
  2. ADVAIR DISKUS 100/50 [Suspect]
     Dosage: 1PUFF THREE TIMES PER DAY
     Route: 055
     Dates: start: 20090101

REACTIONS (4)
  - INAPPROPRIATE SCHEDULE OF DRUG ADMINISTRATION [None]
  - METASTASES TO CENTRAL NERVOUS SYSTEM [None]
  - DRUG INEFFECTIVE [None]
  - INCORRECT DOSE ADMINISTERED [None]
